FAERS Safety Report 5327574-0 (Version None)
Quarter: 2007Q2

REPORT INFORMATION
  Report Type: 
  Country: None (occurrence: None)
  Receive Date: 20070517
  Receipt Date: 20070112
  Transmission Date: 20071010
  Serious: Yes (Hospitalization)
  Sender: FDA-Public Use
  Company Number: US-JNJFOC-20070104338

PATIENT
  Age: 47 Year
  Sex: Female

DRUGS (6)
  1. TRAMADOL ER [Suspect]
     Indication: INTENTIONAL DRUG MISUSE
     Route: 048
  2. TRAMADOL ER [Suspect]
     Indication: OSTEOARTHRITIS
     Route: 048
  3. INDOMETHACIN [Concomitant]
     Indication: INTENTIONAL DRUG MISUSE
     Route: 048
  4. INDOMETHACIN [Concomitant]
     Indication: OSTEOARTHRITIS
     Route: 048
  5. PLAQUINEL [Concomitant]
     Indication: INTENTIONAL DRUG MISUSE
     Route: 048
  6. PLAQUINEL [Concomitant]
     Indication: OSTEOARTHRITIS
     Route: 048

REACTIONS (7)
  - DRUG INEFFECTIVE [None]
  - HYPERHIDROSIS [None]
  - INTENTIONAL DRUG MISUSE [None]
  - NAUSEA [None]
  - PAIN [None]
  - TACHYCARDIA [None]
  - VOMITING [None]
